FAERS Safety Report 25978970 (Version 1)
Quarter: 2025Q4

REPORT INFORMATION
  Report Type: Spontaneous
  Country: CA (occurrence: CA)
  Receive Date: 20251030
  Receipt Date: 20251030
  Transmission Date: 20260117
  Serious: Yes (Hospitalization)
  Sender: TEVA
  Company Number: CA-TEVA-VS-3387210

PATIENT
  Age: 63 Year
  Sex: Female

DRUGS (1)
  1. RISEDRONATE SODIUM [Suspect]
     Active Substance: RISEDRONATE SODIUM
     Indication: Osteoporosis
     Route: 048

REACTIONS (6)
  - Headache [Unknown]
  - Intraventricular haemorrhage [Unknown]
  - Nausea [Unknown]
  - Cerebellar haemorrhage [Unknown]
  - Vomiting [Unknown]
  - Irritability [Unknown]
